FAERS Safety Report 23750844 (Version 1)
Quarter: 2024Q2

REPORT INFORMATION
  Report Type: Spontaneous
  Country: US (occurrence: US)
  Receive Date: 20240417
  Receipt Date: 20240417
  Transmission Date: 20240716
  Serious: No
  Sender: FDA-Public Use
  Company Number: US-AJANTA-2023AJA00273

PATIENT
  Age: 49 Year
  Sex: Female
  Weight: 160 kg

DRUGS (1)
  1. CHOLESTYRAMINE [Suspect]
     Active Substance: CHOLESTYRAMINE
     Indication: Dyspepsia
     Dosage: 3 SCOOPS
     Route: 048
     Dates: start: 20231204, end: 20231206

REACTIONS (2)
  - Product odour abnormal [Unknown]
  - Off label use [Unknown]

NARRATIVE: CASE EVENT DATE: 20231204
